FAERS Safety Report 7728216-7 (Version None)
Quarter: 2011Q3

REPORT INFORMATION
  Report Type: 
  Country: None (occurrence: None)
  Receive Date: 20110905
  Receipt Date: 20110825
  Transmission Date: 20111222
  Serious: Yes (Hospitalization)
  Sender: FDA-Public Use
  Company Number: PHHY2011NL76224

PATIENT
  Sex: Male

DRUGS (13)
  1. ZOMETA [Suspect]
     Dosage: 4 MG/ 5 ML
     Route: 065
     Dates: start: 20110728
  2. TEMAZEPAM [Concomitant]
     Dosage: 10 MG,1 X 1
     Route: 065
  3. AMOXICILLIN/ CLAVULUNIC ACID [Concomitant]
     Dosage: 500/125 3DD1
  4. ACETYLSALICYLIC ACID SRT [Concomitant]
     Dosage: 80 MG,
     Route: 065
  5. METOPROLOL [Concomitant]
     Dosage: 50 MG,2X1
     Route: 065
  6. PERINDOPRIL ERBUMINE [Concomitant]
     Dosage: 5 MG, DAILY
     Route: 065
  7. LACTULOSE [Concomitant]
     Dosage: 2X 15ML
  8. ZOMETA [Suspect]
     Dosage: 4 MG/ 5 ML
     Dates: start: 20110825
  9. PANTOPRAZOLE [Concomitant]
     Dosage: 40 MG, DAILY
     Route: 065
  10. FENTANYL-100 [Concomitant]
     Dosage: 25 UG,1X PER 3 DAYS
     Route: 065
  11. IPRATROPIUM BROMIDE [Concomitant]
     Dosage: 0.04 MG 2 TO 4X DAILY
  12. ZOMETA [Suspect]
     Dosage: 4 MG/ 5 ML
     Dates: start: 20110603
  13. BICALUTAMIDE [Concomitant]
     Dosage: 50 MG, TID
     Route: 065

REACTIONS (6)
  - CHRONIC OBSTRUCTIVE PULMONARY DISEASE [None]
  - PYREXIA [None]
  - TYPE 2 DIABETES MELLITUS [None]
  - CONFUSIONAL STATE [None]
  - DEHYDRATION [None]
  - CONSTIPATION [None]
